FAERS Safety Report 6023833-7 (Version None)
Quarter: 2008Q4

REPORT INFORMATION
  Report Type: 
  Country: None (occurrence: None)
  Receive Date: 20081230
  Receipt Date: 20081215
  Transmission Date: 20090506
  Serious: Yes (Death)
  Sender: FDA-Public Use
  Company Number: US-PFIZER INC-2008153495

PATIENT
  Age: 23 Year
  Sex: Female

DRUGS (3)
  1. SERTRALINE HCL [Suspect]
     Route: 048
  2. VENLAFAXINE [Suspect]
     Route: 048
  3. TOPIRAMATE [Suspect]
     Route: 048

REACTIONS (3)
  - ADVERSE REACTION [None]
  - CARDIAC ARREST [None]
  - RESPIRATORY ARREST [None]
